FAERS Safety Report 13651128 (Version 1)
Quarter: 2017Q2

REPORT INFORMATION
  Report Type: Spontaneous
  Country: IN (occurrence: IN)
  Receive Date: 20170614
  Receipt Date: 20170614
  Transmission Date: 20170830
  Serious: Yes (Hospitalization, Other)
  Sender: FDA-Public Use
  Company Number: IN-ASTELLAS-2017US023017

PATIENT
  Age: 30 Year
  Sex: Female

DRUGS (1)
  1. TACROLIMUS. [Suspect]
     Active Substance: TACROLIMUS
     Indication: RENAL AND PANCREAS TRANSPLANT
     Dosage: UNK UNK, UNKNOWN FREQ.
     Route: 065

REACTIONS (7)
  - Urinary tract infection [Recovering/Resolving]
  - Vertigo positional [Unknown]
  - Pyrexia [Unknown]
  - Escherichia urinary tract infection [Recovering/Resolving]
  - Klebsiella infection [Recovering/Resolving]
  - Blood creatinine increased [Recovering/Resolving]
  - Vomiting [Unknown]
